FAERS Safety Report 6744531-8 (Version None)
Quarter: 2010Q2

REPORT INFORMATION
  Report Type: 
  Country: None (occurrence: None)
  Receive Date: 20100527
  Receipt Date: 20100518
  Transmission Date: 20101027
  Serious: Yes (Death)
  Sender: FDA-Public Use
  Company Number: US-ABBOTT-10P-163-0641489-00

PATIENT
  Sex: Male
  Weight: 127.12 kg

DRUGS (1)
  1. VICODIN [Suspect]
     Indication: DRUG USE FOR UNKNOWN INDICATION
     Dosage: CRUSHED UP, HEATED AND MIXED WITH WATER
     Route: 042
     Dates: end: 20100111

REACTIONS (6)
  - ALCOHOL POISONING [None]
  - ASPHYXIA [None]
  - DRUG TOXICITY [None]
  - HEPATITIS C [None]
  - PULMONARY CONGESTION [None]
  - PULMONARY OEDEMA [None]
